FAERS Safety Report 8006497-2 (Version None)
Quarter: 2011Q4

REPORT INFORMATION
  Report Type: 
  Country: None (occurrence: None)
  Receive Date: 20111226
  Receipt Date: 20111215
  Transmission Date: 20120403
  Serious: Yes (Other)
  Sender: FDA-Public Use
  Company Number: PHEH2011US011845

PATIENT
  Sex: Male
  Weight: 178.23 kg

DRUGS (1)
  1. DIOVAN [Suspect]
     Dosage: 320 MG, QD
     Route: 048

REACTIONS (12)
  - CHOLESTEATOMA [None]
  - SLEEP APNOEA SYNDROME [None]
  - INSULIN-LIKE GROWTH FACTOR INCREASED [None]
  - WEIGHT INCREASED [None]
  - BLOOD PRESSURE INADEQUATELY CONTROLLED [None]
  - OBESITY [None]
  - HYPERLIPIDAEMIA [None]
  - DEAFNESS [None]
  - OEDEMA PERIPHERAL [None]
  - HYPERTENSION [None]
  - PITUITARY TUMOUR [None]
  - TOOTH LOSS [None]
